FAERS Safety Report 16524033 (Version 4)
Quarter: 2019Q4

REPORT INFORMATION
  Report Type: Report from Study
  Country: US (occurrence: US)
  Receive Date: 20190702
  Receipt Date: 20191119
  Transmission Date: 20200122
  Serious: Yes (Death, Hospitalization, Other)
  Sender: FDA-Public Use
  Company Number: US-ACTELION-A-NJ2017-160640

PATIENT
  Age: 61 Year
  Sex: Female
  Weight: 54.88 kg

DRUGS (3)
  1. REMODULIN [Concomitant]
     Active Substance: TREPROSTINIL
     Dosage: 0.042 ML/HR
  2. TRACLEER [Suspect]
     Active Substance: BOSENTAN
     Indication: PULMONARY ARTERIAL HYPERTENSION
     Dosage: 125 MG, BID
     Route: 048
  3. ADEMPAS [Concomitant]
     Active Substance: RIOCIGUAT
     Dosage: UNK
     Dates: start: 20180925

REACTIONS (26)
  - Death [Fatal]
  - Catheter site pain [Unknown]
  - Seasonal allergy [Unknown]
  - Catheter site swelling [Unknown]
  - Abdominal discomfort [Unknown]
  - Malaise [Unknown]
  - Staphylococcal infection [Unknown]
  - Hypotension [Unknown]
  - Rash [Unknown]
  - Abdominal infection [Unknown]
  - Peripheral swelling [Recovering/Resolving]
  - Swelling face [Recovering/Resolving]
  - Somnolence [Unknown]
  - Dizziness [Unknown]
  - Abdominal distension [Recovering/Resolving]
  - Device infusion issue [Unknown]
  - Oedema peripheral [Unknown]
  - Hypersensitivity [Unknown]
  - Catheter site warmth [Unknown]
  - Clostridium difficile infection [Unknown]
  - Fluid retention [Unknown]
  - Syncope [Unknown]
  - Gait inability [Unknown]
  - Sinusitis [Unknown]
  - Catheter site haemorrhage [Unknown]
  - Dermatitis contact [Unknown]

NARRATIVE: CASE EVENT DATE: 20190623
